FAERS Safety Report 14217644 (Version 2)
Quarter: 2018Q1

REPORT INFORMATION
  Report Type: Spontaneous
  Country: US (occurrence: US)
  Receive Date: 20171123
  Receipt Date: 20180201
  Transmission Date: 20180508
  Serious: No
  Sender: FDA-Public Use
  Company Number: US-PFIZER INC-2017503622

PATIENT
  Age: 72 Year
  Sex: Male
  Weight: 116 kg

DRUGS (1)
  1. LOMOTIL [Suspect]
     Active Substance: ATROPINE SULFATE\DIPHENOXYLATE HYDROCHLORIDE
     Indication: DIARRHOEA
     Dosage: 1 DF, 3X/DAY AS NEEDED
     Route: 048
     Dates: start: 201606

REACTIONS (2)
  - Product use issue [Unknown]
  - Drug ineffective [Unknown]
